FAERS Safety Report 23861995 (Version 1)
Quarter: 2024Q2

REPORT INFORMATION
  Report Type: Spontaneous
  Country: US (occurrence: None)
  Receive Date: 20240515
  Receipt Date: 20240515
  Transmission Date: 20240715
  Serious: Yes (Hospitalization)
  Sender: FDA-Public Use
  Company Number: None

PATIENT
  Age: 66 Year
  Sex: Female

DRUGS (1)
  1. DIMETHYL FUMARATE [Suspect]
     Active Substance: DIMETHYL FUMARATE
     Indication: Multiple sclerosis
     Dosage: FREQUENCY : TWICE A DAY;?

REACTIONS (14)
  - Arthralgia [None]
  - Arthralgia [None]
  - Pain [None]
  - Pain [None]
  - Dizziness [None]
  - Pain in extremity [None]
  - Nausea [None]
  - Headache [None]
  - Depression [None]
  - Ulcer [None]
  - Multiple sclerosis [None]
  - Vein disorder [None]
  - Arterial disorder [None]
  - Drug ineffective [None]
